FAERS Safety Report 16963344 (Version 1)
Quarter: 2019Q4

REPORT INFORMATION
  Report Type: Report from Study
  Country: US (occurrence: US)
  Receive Date: 20191025
  Receipt Date: 20191025
  Transmission Date: 20200122
  Serious: Yes (Hospitalization)
  Sender: FDA-Public Use
  Company Number: US-EISAI MEDICAL RESEARCH-EC-2019-056141

PATIENT
  Sex: Male
  Weight: 66 kg

DRUGS (5)
  1. METHYLPREDNISOLONE. [Concomitant]
     Active Substance: METHYLPREDNISOLONE
  2. LENVIMA [Suspect]
     Active Substance: LENVATINIB
     Indication: RENAL CANCER
     Route: 048
     Dates: start: 20190422, end: 2019
  3. LENVIMA [Suspect]
     Active Substance: LENVATINIB
     Route: 048
     Dates: start: 2019, end: 201910
  4. AFINITOR [Concomitant]
     Active Substance: EVEROLIMUS
  5. CALCIUM + D3 [Concomitant]
     Active Substance: CALCIUM\CHOLECALCIFEROL

REACTIONS (12)
  - Asthenia [Unknown]
  - Weight decreased [Unknown]
  - Dysstasia [Unknown]
  - Joint noise [Unknown]
  - Insomnia [Unknown]
  - Hypersomnia [Unknown]
  - Fatigue [Unknown]
  - Cardiac failure congestive [Unknown]
  - Blood pressure increased [Unknown]
  - Swelling [Not Recovered/Not Resolved]
  - Decreased appetite [Not Recovered/Not Resolved]
  - Cough [Unknown]

NARRATIVE: CASE EVENT DATE: 2019
